FAERS Safety Report 18545869 (Version 1)
Quarter: 2020Q4

REPORT INFORMATION
  Report Type: Spontaneous
  Country: JP (occurrence: JP)
  Receive Date: 20201125
  Receipt Date: 20201125
  Transmission Date: 20210114
  Serious: Yes (Other)
  Sender: FDA-Public Use
  Company Number: JP-BAYER-2020-248786

PATIENT
  Age: 14 Year
  Sex: Female
  Weight: 51.7 kg

DRUGS (16)
  1. RIBAVARIN [Concomitant]
     Active Substance: RIBAVIRIN
     Dosage: 3 DF, TID
  2. MIYA-BM [Concomitant]
     Active Substance: CLOSTRIDIUM BUTYRICUM SPORES STRAIN M-55
     Dosage: 2 DF, BID
  3. VITAMIN B6 [Concomitant]
     Active Substance: PYRIDOXINE HYDROCHLORIDE
     Dosage: 1 DF, QD
  4. POLARAMINE [Concomitant]
     Active Substance: DEXCHLORPHENIRAMINE MALEATE
     Indication: ALLERGY PROPHYLAXIS
     Dosage: UNK
     Dates: start: 20201006
  5. GADOVIST [Suspect]
     Active Substance: GADOBUTROL
     Indication: BRAIN NEOPLASM
     Dosage: 7.5 ML, ONCE
     Route: 042
     Dates: start: 20201007, end: 20201007
  6. LANSOPRAZOLE. [Concomitant]
     Active Substance: LANSOPRAZOLE
     Dosage: 1 DF, QD
  7. CINAL [ZONISAMIDE] [Concomitant]
     Active Substance: ZONISAMIDE
     Dosage: 3 G, TID
  8. NEUROTROPIN [RABBIT VACCINIA EXTRACT] [Concomitant]
     Active Substance: ORYCTOLAGUS CUNICULUS SKIN
     Dosage: 4 DF, BID
  9. CARBOCISTEINE [Concomitant]
     Active Substance: CARBOCYSTEINE
     Dosage: 3 DF, TID
  10. GADOVIST [Suspect]
     Active Substance: GADOBUTROL
     Indication: MAGNETIC RESONANCE IMAGING BRAIN
  11. METHYCOBAL [Concomitant]
     Active Substance: METHYLCOBALAMIN
     Dosage: 3 DF, TID
  12. RESTAMIN KOWA [Concomitant]
     Dosage: 1 HOUR BEFORE MRI
     Dates: start: 20201007, end: 20201007
  13. PREDNISOLONE. [Concomitant]
     Active Substance: PREDNISOLONE
     Indication: ALLERGY PROPHYLAXIS
     Dosage: 13 HOURS, 7 HOURS, 1 HOUR BEFORE MRI EXAMINATION, 1 TABLET AT A TIME
     Dates: start: 20201006, end: 20201007
  14. FEXOFENADINE HYDROCHLORIDE. [Concomitant]
     Active Substance: FEXOFENADINE HYDROCHLORIDE
     Dosage: 2 DF, BID
  15. PRANLUKAST [Concomitant]
     Active Substance: PRANLUKAST
     Dosage: 4 DF, BID
  16. MAGMITT [Concomitant]
     Active Substance: MAGNESIUM OXIDE
     Dosage: 3 DF, TID

REACTIONS (5)
  - Feeling abnormal [None]
  - Altered state of consciousness [Recovered/Resolved]
  - Documented hypersensitivity to administered product [None]
  - Asthenia [None]
  - Contraindicated product administered [None]

NARRATIVE: CASE EVENT DATE: 20201007
